FAERS Safety Report 13429571 (Version 1)
Quarter: 2017Q2

REPORT INFORMATION
  Report Type: Report from Study
  Country: CA (occurrence: CA)
  Receive Date: 20170411
  Receipt Date: 20170411
  Transmission Date: 20170830
  Serious: Yes (Hospitalization)
  Sender: FDA-Public Use
  Company Number: CA-BIOGEN-2017BI00384770

PATIENT
  Age: 32 Year
  Sex: Male

DRUGS (1)
  1. FAMPYRA [Suspect]
     Active Substance: DALFAMPRIDINE
     Indication: GAIT DISTURBANCE
     Route: 048
     Dates: start: 20160718

REACTIONS (2)
  - Nuclear magnetic resonance imaging abnormal [Unknown]
  - Diplegia [Recovered/Resolved]

NARRATIVE: CASE EVENT DATE: 201610
